FAERS Safety Report 6774808-1 (Version None)
Quarter: 2010Q2

REPORT INFORMATION
  Report Type: 
  Country: None (occurrence: None)
  Receive Date: 20100616
  Receipt Date: 20100616
  Transmission Date: 20101027
  Serious: No
  Sender: FDA-Public Use
  Company Number: None

PATIENT
  Age: 28 Year
  Sex: Female
  Weight: 56.6996 kg

DRUGS (1)
  1. MICROGESTIN 1.5/30 [Suspect]
     Indication: CONTRACEPTION
     Dosage: 30 TABS TAKEN EVERY 28 DAYS ; MONTHS
     Dates: start: 20100301, end: 20100601

REACTIONS (6)
  - ANEURYSM [None]
  - ARTHRALGIA [None]
  - HEADACHE [None]
  - MIGRAINE [None]
  - THROMBOSIS [None]
  - VISION BLURRED [None]
